FAERS Safety Report 16109701 (Version 1)
Quarter: 2019Q1

REPORT INFORMATION
  Report Type: Spontaneous
  Country: BR (occurrence: BR)
  Receive Date: 20190325
  Receipt Date: 20190325
  Transmission Date: 20190418
  Serious: Yes (Other)
  Sender: FDA-Public Use
  Company Number: BR-TORRENT-00004897

PATIENT
  Sex: Male

DRUGS (1)
  1. LAMITOR CD 25 MG [Suspect]
     Active Substance: LAMOTRIGINE
     Indication: SEIZURE
     Dosage: UNKNOWN
     Route: 048

REACTIONS (5)
  - Product dispensing error [Unknown]
  - Muscular weakness [Unknown]
  - Seizure [None]
  - Drug ineffective [Unknown]
  - Product dispensing error [None]
